FAERS Safety Report 16012898 (Version 1)
Quarter: 2019Q1

REPORT INFORMATION
  Report Type: Spontaneous
  Country: US (occurrence: US)
  Receive Date: 20190131
  Receipt Date: 20190131
  Transmission Date: 20190418
  Serious: Yes (Hospitalization)
  Sender: FDA-Public Use
  Company Number: None

PATIENT
  Age: 74 Year
  Sex: Male

DRUGS (1)
  1. MEKINIST [Suspect]
     Active Substance: TRAMETINIB DIMETHYL SULFOXIDE
     Route: 048
     Dates: start: 201812

REACTIONS (5)
  - Pyrexia [None]
  - Feeling abnormal [None]
  - Asthenia [None]
  - Urinary incontinence [None]
  - Musculoskeletal stiffness [None]

NARRATIVE: CASE EVENT DATE: 20190117
